FAERS Safety Report 11055894 (Version 1)
Quarter: 2015Q2

REPORT INFORMATION
  Report Type: Spontaneous
  Country: US (occurrence: None)
  Receive Date: 20150421
  Receipt Date: 20150421
  Transmission Date: 20150821
  Serious: Yes (Life-Threatening, Hospitalization)
  Sender: FDA-Public Use
  Company Number: None

PATIENT
  Age: 74 Year
  Sex: Female

DRUGS (16)
  1. ESOMEPRAZOLE [Concomitant]
     Active Substance: ESOMEPRAZOLE
  2. GLYBURIDE. [Concomitant]
     Active Substance: GLYBURIDE
  3. POTASSIUM [Concomitant]
     Active Substance: POTASSIUM
  4. PRIMIDONE. [Concomitant]
     Active Substance: PRIMIDONE
  5. SIMVASTATIN. [Concomitant]
     Active Substance: SIMVASTATIN
  6. BROMFENAC [Concomitant]
     Active Substance: BROMFENAC\BROMFENAC SODIUM
  7. ACETAMINOPHEN. [Concomitant]
     Active Substance: ACETAMINOPHEN
  8. BISOPROLOL [Concomitant]
     Active Substance: BISOPROLOL
  9. PARACALICITOL [Concomitant]
  10. CIPROFLOXACIN. [Concomitant]
     Active Substance: CIPROFLOXACIN
  11. RAMIPRIL. [Concomitant]
     Active Substance: RAMIPRIL
  12. SITAGLIPTIN [Concomitant]
     Active Substance: SITAGLIPTIN
  13. DABIGATRAN 150 MG [Suspect]
     Active Substance: DABIGATRAN
     Indication: ATRIAL FIBRILLATION
     Route: 048
  14. DIFLUPREDNATE [Concomitant]
     Active Substance: DIFLUPREDNATE
  15. GABAPENTIN. [Concomitant]
     Active Substance: GABAPENTIN
  16. TORSEMIDE. [Concomitant]
     Active Substance: TORSEMIDE

REACTIONS (1)
  - Gastrointestinal haemorrhage [None]

NARRATIVE: CASE EVENT DATE: 20150420
